FAERS Safety Report 18632949 (Version 1)
Quarter: 2020Q4

REPORT INFORMATION
  Report Type: Spontaneous
  Country: DK (occurrence: DK)
  Receive Date: 20201218
  Receipt Date: 20201218
  Transmission Date: 20210114
  Serious: Yes (Death, Congenital Anomaly)
  Sender: FDA-Public Use
  Company Number: DK-TEVA-2020-DK-1858777

PATIENT

DRUGS (4)
  1. MOTIRON [Suspect]
     Active Substance: METHYLPHENIDATE HYDROCHLORIDE
     Dosage: 60 MG
     Route: 064
     Dates: start: 20160823, end: 2020
  2. FOLAT [Concomitant]
     Indication: VITAMIN SUPPLEMENTATION
     Dosage: DOSAGE AND STRENGTH: UNKNOWN
     Route: 064
     Dates: start: 2020
  3. QUETIAPINE ^TEVA^ [Suspect]
     Active Substance: QUETIAPINE
     Indication: ATTENTION DEFICIT HYPERACTIVITY DISORDER
     Dosage: 50 MG
     Route: 064
     Dates: start: 20181205, end: 2020
  4. MOTIRON [Suspect]
     Active Substance: METHYLPHENIDATE HYDROCHLORIDE
     Indication: ATTENTION DEFICIT HYPERACTIVITY DISORDER
     Dosage: 10 MG
     Route: 064
     Dates: start: 20160823, end: 2020

REACTIONS (2)
  - Foetal exposure during pregnancy [Fatal]
  - Congenital anomaly [Fatal]

NARRATIVE: CASE EVENT DATE: 20201112
